FAERS Safety Report 5524951-X (Version None)
Quarter: 2007Q4

REPORT INFORMATION
  Report Type: 
  Country: None (occurrence: None)
  Receive Date: 20071119
  Receipt Date: 20071106
  Transmission Date: 20080405
  Serious: Yes (Hospitalization)
  Sender: FDA-Public Use
  Company Number: B0494966A

PATIENT
  Age: 20 Year
  Sex: Female

DRUGS (6)
  1. PREDNISOLONE [Suspect]
     Indication: ASTHMA
     Dosage: ORAL
     Route: 048
  2. FLOVENT [Suspect]
     Dosage: 800 UG / PER DAY / INHALED
     Route: 055
  3. BETAMETHASONE [Suspect]
     Dosage: INTRAVENOUS
     Route: 042
  4. PRANLUKAST [Concomitant]
  5. THEOPHYLLINE [Concomitant]
  6. SALBUTAMOL SULPHATE [Concomitant]

REACTIONS (4)
  - ACQUIRED DIAPHRAGMATIC EVENTRATION [None]
  - ASTHMA [None]
  - CONDITION AGGRAVATED [None]
  - MYOPATHY STEROID [None]
